FAERS Safety Report 6132983-6 (Version None)
Quarter: 2009Q1

REPORT INFORMATION
  Report Type: 
  Country: None (occurrence: None)
  Receive Date: 20090325
  Receipt Date: 20090325
  Transmission Date: 20090719
  Serious: Yes (Death)
  Sender: FDA-Public Use
  Company Number: None

PATIENT
  Sex: Female

DRUGS (13)
  1. REVLIMID [Suspect]
     Indication: MULTIPLE MYELOMA
     Dosage: 15 MG QOD 21D/28D ORAL
     Route: 048
  2. DEXAMETHASONE 4MG TAB [Suspect]
     Dosage: 40MG QWEEK ORAL
     Route: 048
  3. DECADRON [Concomitant]
  4. PRILOSEC [Concomitant]
  5. LACTULOSE [Concomitant]
  6. CELEXA [Concomitant]
  7. QVAR 40 [Concomitant]
  8. PROAIR HFA [Concomitant]
  9. LORATADINE [Concomitant]
  10. MAGNESIUM SULFATE [Concomitant]
  11. POTASSIUM CHLORIDE [Concomitant]
  12. FUROSEMIDE [Concomitant]
  13. ASPIRIN [Concomitant]

REACTIONS (1)
  - DISEASE PROGRESSION [None]
